FAERS Safety Report 13381333 (Version 1)
Quarter: 2017Q1

REPORT INFORMATION
  Report Type: Spontaneous
  Country: US (occurrence: US)
  Receive Date: 20170329
  Receipt Date: 20170329
  Transmission Date: 20170429
  Serious: No
  Sender: FDA-Public Use
  Company Number: US-TEVA-727675ACC

PATIENT
  Sex: Female

DRUGS (1)
  1. SUCRALFATE TABLETS TEVA [Suspect]
     Active Substance: SUCRALFATE

REACTIONS (1)
  - Hypersensitivity [Unknown]
